FAERS Safety Report 9350462 (Version 1)
Quarter: 2013Q2

REPORT INFORMATION
  Report Type: Spontaneous
  Country: HK (occurrence: HK)
  Receive Date: 20130617
  Receipt Date: 20130617
  Transmission Date: 20140414
  Serious: Yes (Other)
  Sender: FDA-Public Use
  Company Number: HK-JNJFOC-20130602753

PATIENT
  Age: 46 Year
  Sex: Male

DRUGS (2)
  1. ITRACONAZOLE [Suspect]
     Indication: ANTIFUNGAL PROPHYLAXIS
     Route: 048
  2. GRANULOCYTE COLONY-STIMULATING FACTOR [Concomitant]
     Indication: NEUTROPENIA
     Route: 065

REACTIONS (1)
  - Candida infection [Unknown]
